FAERS Safety Report 24270002 (Version 1)
Quarter: 2024Q3

REPORT INFORMATION
  Report Type: Spontaneous
  Country: ZA (occurrence: ZA)
  Receive Date: 20240830
  Receipt Date: 20240830
  Transmission Date: 20241016
  Serious: Yes (Hospitalization)
  Sender: ELI LILLY AND CO
  Company Number: ZA-ELI_LILLY_AND_COMPANY-ZA202408012893

PATIENT
  Age: 55 Year
  Sex: Female

DRUGS (1)
  1. BARICITINIB [Suspect]
     Active Substance: BARICITINIB
     Indication: Product used for unknown indication
     Dosage: 4 MG, DAILY
     Route: 065
     Dates: start: 202402, end: 202407

REACTIONS (1)
  - Rheumatoid arthritis [Unknown]
